FAERS Safety Report 24555774 (Version 1)
Quarter: 2024Q4

REPORT INFORMATION
  Report Type: Spontaneous
  Country: US (occurrence: US)
  Receive Date: 20241028
  Receipt Date: 20241028
  Transmission Date: 20250114
  Serious: No
  Sender: AMNEAL
  Company Number: US-AMNEAL PHARMACEUTICALS-2024-AMRX-00306

PATIENT
  Sex: Female

DRUGS (1)
  1. FELBAMATE [Suspect]
     Active Substance: FELBAMATE
     Indication: Product used for unknown indication
     Dosage: 600 MILLIGRAM
     Route: 048

REACTIONS (1)
  - Drug ineffective [Unknown]
